FAERS Safety Report 24299475 (Version 1)
Quarter: 2024Q3

REPORT INFORMATION
  Report Type: Spontaneous
  Country: US (occurrence: US)
  Receive Date: 20240909
  Receipt Date: 20240909
  Transmission Date: 20241017
  Serious: No
  Sender: PFIZER
  Company Number: US-PFIZER INC-202400251935

PATIENT
  Age: 67 Year
  Sex: Male

DRUGS (2)
  1. PAXLOVID [Suspect]
     Active Substance: NIRMATRELVIR\RITONAVIR
     Indication: COVID-19 treatment
     Dosage: UNK
     Dates: start: 20240829, end: 20240903
  2. DIAZEPAM [Concomitant]
     Active Substance: DIAZEPAM
     Dosage: 5 MG
     Dates: start: 20220914

REACTIONS (2)
  - COVID-19 [Unknown]
  - Disease recurrence [Unknown]
